FAERS Safety Report 8589714-X (Version None)
Quarter: 2012Q3

REPORT INFORMATION
  Report Type: 
  Country: None (occurrence: None)
  Receive Date: 20120813
  Receipt Date: 20120802
  Transmission Date: 20120928
  Serious: Yes (Hospitalization, Other)
  Sender: FDA-Public Use
  Company Number: JP-CELGENEUS-087-21880-12050546

PATIENT
  Age: 79 Year
  Sex: Female

DRUGS (20)
  1. REVLIMID [Suspect]
     Indication: MULTIPLE MYELOMA
     Dosage: 25 MILLIGRAM
     Route: 048
     Dates: start: 20120327, end: 20120522
  2. TOCOPHERYL NICOTINATE [Concomitant]
     Route: 065
     Dates: start: 20120418
  3. ALFACALCIDOL [Concomitant]
     Dosage: .5 MILLIGRAM
     Route: 065
     Dates: start: 20080418
  4. EXCITALOPRAM OXALATE [Concomitant]
     Route: 065
     Dates: start: 20120515
  5. ELOTUZUMAB [Suspect]
     Indication: MULTIPLE MYELOMA
     Dosage: 543 MILLIGRAM
     Route: 042
     Dates: start: 20120327, end: 20120425
  6. ASPIRIN [Concomitant]
     Route: 065
     Dates: start: 20120327
  7. OMEPRAZOLE [Concomitant]
     Dosage: 20 MILLIGRAM
     Route: 065
     Dates: start: 20120327
  8. REBAMIPIDE [Concomitant]
     Dosage: 100 MILLIGRAM
     Route: 065
     Dates: start: 20100507
  9. DEXAMETHASONE SODIUM PHOSPHATE [Concomitant]
     Dosage: 6.6 MILLIGRAM
     Route: 065
     Dates: start: 20120327, end: 20120425
  10. DISTIGMINE BROMIDE [Concomitant]
     Route: 065
     Dates: start: 20120523, end: 20120529
  11. DIFLUCORTOLONE VALERATE [Concomitant]
     Route: 065
     Dates: start: 20120518
  12. MAGNESIUM OXIDE [Concomitant]
     Dosage: 330 MILLIGRAM
     Route: 065
     Dates: start: 20080418
  13. DEXAMETHASONE [Suspect]
     Dosage: 8 MILLIGRAM
     Route: 042
     Dates: start: 20120327, end: 20120425
  14. METOPROLOL TARTRATE [Concomitant]
     Dosage: 120 MILLIGRAM
     Route: 065
     Dates: start: 20080825, end: 20120609
  15. MIRTAZAPINE [Concomitant]
     Route: 065
     Dates: start: 20120529
  16. INDOMETHACIN [Concomitant]
     Route: 065
     Dates: start: 20120415
  17. TOCOPHERYL NICOTINATE [Concomitant]
     Route: 065
     Dates: start: 20110902
  18. DEXAMETHASONE [Suspect]
     Indication: MULTIPLE MYELOMA
     Dosage: 28 MILLIGRAM
     Route: 048
     Dates: start: 20120327, end: 20120523
  19. UNKNOWNDRUG [Concomitant]
     Route: 065
     Dates: start: 20120530
  20. RILMAZAFONE HYDROCHLORIDE HYDRATE [Concomitant]
     Dosage: 1 MILLIGRAM
     Route: 065
     Dates: start: 20120328

REACTIONS (3)
  - PYELONEPHRITIS [None]
  - DEPRESSION [None]
  - NEUROGENIC BLADDER [None]
